FAERS Safety Report 25078300 (Version 1)
Quarter: 2025Q1

REPORT INFORMATION
  Report Type: Spontaneous
  Country: US (occurrence: None)
  Receive Date: 20250313
  Receipt Date: 20250313
  Transmission Date: 20250409
  Serious: Yes (Disabling)
  Sender: FDA-CTU
  Company Number: None

PATIENT
  Age: 43 Year
  Sex: Male
  Weight: 110.25 kg

DRUGS (30)
  1. JOURNAVX [Suspect]
     Active Substance: SUZETRIGINE
     Indication: Neuralgia
     Dosage: OTHER QUANTITY : 30 TABLET(S);?FREQUENCY : EVERY 12 HOURS;?
     Route: 048
     Dates: start: 20250311, end: 20250311
  2. DULOXETINE [Concomitant]
     Active Substance: DULOXETINE
  3. PREGABALIN [Concomitant]
     Active Substance: PREGABALIN
  4. OXCARBAZEPINE [Concomitant]
     Active Substance: OXCARBAZEPINE
  5. DEXTROMETHORPHAN [Concomitant]
     Active Substance: DEXTROMETHORPHAN
  6. MISOPROSTOL [Concomitant]
     Active Substance: MISOPROSTOL
  7. MEMANTINE [Concomitant]
     Active Substance: MEMANTINE
  8. METHADONE [Concomitant]
     Active Substance: METHADONE HYDROCHLORIDE
  9. RELISTOR [Concomitant]
     Active Substance: METHYLNALTREXONE BROMIDE
  10. MOTEGRITY [Concomitant]
     Active Substance: PRUCALOPRIDE SUCCINATE
  11. LINZESS [Concomitant]
     Active Substance: LINACLOTIDE
  12. FUROSEMIDE [Concomitant]
     Active Substance: FUROSEMIDE
  13. METOLAZONE [Concomitant]
     Active Substance: METOLAZONE
  14. KLOR-CON [Concomitant]
     Active Substance: POTASSIUM CHLORIDE
  15. RITUXAN [Concomitant]
     Active Substance: RITUXIMAB
  16. GAMUNEX [Concomitant]
     Active Substance: HUMAN IMMUNOGLOBULIN G
  17. qutenza patches [Concomitant]
  18. LIDOCAINE [Concomitant]
     Active Substance: LIDOCAINE
  19. HYDROXYZINE [Concomitant]
     Active Substance: HYDROXYZINE HYDROCHLORIDE
  20. ASPIRIN [Concomitant]
     Active Substance: ASPIRIN
  21. ALPHA LIPOIC ACID [Concomitant]
     Active Substance: .ALPHA.-LIPOIC ACID
  22. VITAMIN B12 [Concomitant]
     Active Substance: CYANOCOBALAMIN
  23. DIETARY SUPPLEMENT\HERBALS\MILK THISTLE [Concomitant]
     Active Substance: MILK THISTLE
  24. VITAMIN E [Concomitant]
     Active Substance: .ALPHA.-TOCOPHEROL
  25. OMEGA 3 [Concomitant]
     Active Substance: CAPSAICIN
  26. ACETYLCARNITINE [Concomitant]
     Active Substance: ACETYLCARNITINE
  27. TYLENOL [Concomitant]
     Active Substance: ACETAMINOPHEN
  28. MELATONIN [Concomitant]
     Active Substance: MELATONIN
  29. DOXYLAMINE [Concomitant]
     Active Substance: DOXYLAMINE
  30. MILK OF MAGNESIA [Concomitant]
     Active Substance: MAGNESIUM HYDROXIDE

REACTIONS (5)
  - Inadequate analgesia [None]
  - Neuralgia [None]
  - Pain [None]
  - Pruritus [None]
  - Off label use [None]

NARRATIVE: CASE EVENT DATE: 20250311
